FAERS Safety Report 15332196 (Version 1)
Quarter: 2018Q3

REPORT INFORMATION
  Report Type: Spontaneous
  Country: US (occurrence: US)
  Receive Date: 20180828
  Receipt Date: 20180828
  Transmission Date: 20181010
  Serious: Yes (Disabling)
  Sender: FDA-Public Use
  Company Number: None

PATIENT
  Age: 35 Year
  Sex: Female

DRUGS (2)
  1. PALMER^S COCOA BUTTER FORMULA SKIN PERFECTING MOISTURIZING DAY CREAM SPF 15 (OCTINOXATE\OXYBENZONE) [Suspect]
     Active Substance: OCTINOXATE\OXYBENZONE
     Indication: DRY SKIN PROPHYLAXIS
     Dosage: ?          QUANTITY:2.7 OUNCE(S);?
     Route: 061
     Dates: start: 20180827, end: 20180827
  2. PALMER^S COCOA BUTTER FORMULA SKIN PERFECTING MOISTURIZING DAY CREAM SPF 15 (OCTINOXATE\OXYBENZONE) [Suspect]
     Active Substance: OCTINOXATE\OXYBENZONE
     Indication: PROPHYLAXIS AGAINST SOLAR RADIATION
     Dosage: ?          QUANTITY:2.7 OUNCE(S);?
     Route: 061
     Dates: start: 20180827, end: 20180827

REACTIONS (3)
  - Product use complaint [None]
  - Product formulation issue [None]
  - Drug hypersensitivity [None]

NARRATIVE: CASE EVENT DATE: 20180827
